FAERS Safety Report 9417261 (Version 1)
Quarter: 2013Q3

REPORT INFORMATION
  Report Type: Spontaneous
  Country: US (occurrence: None)
  Receive Date: 20130722
  Receipt Date: 20130722
  Transmission Date: 20140515
  Serious: No
  Sender: FDA-Public Use
  Company Number: None

PATIENT
  Age: 60 Year
  Sex: Female
  Weight: 48.54 kg

DRUGS (4)
  1. ALENDRONATE SODIUM [Suspect]
     Indication: OSTEOPOROSIS
     Dosage: 1 PILL
     Route: 048
     Dates: start: 201106, end: 20130418
  2. CALCIUM [Concomitant]
  3. MULTI VITAMIN [Concomitant]
  4. GLUCOSAMINE [Concomitant]

REACTIONS (1)
  - Arthralgia [None]
